FAERS Safety Report 20999425 (Version 4)
Quarter: 2022Q3

REPORT INFORMATION
  Report Type: Spontaneous
  Country: SE (occurrence: SE)
  Receive Date: 20220623
  Receipt Date: 20220912
  Transmission Date: 20221027
  Serious: Yes (Other)
  Sender: FDA-Public Use
  Company Number: SE-ORGANON-O2206SWE001937

PATIENT
  Sex: Female

DRUGS (2)
  1. NEXPLANON [Suspect]
     Active Substance: ETONOGESTREL
     Indication: Contraceptive implant
     Dosage: 1 IMPLANT
     Route: 059
     Dates: start: 20220606
  2. NEXPLANON [Concomitant]
     Active Substance: ETONOGESTREL
     Indication: Contraceptive implant
     Dosage: 1 IMPLANT
     Route: 059
     Dates: end: 20220606

REACTIONS (1)
  - Device dislocation [Not Recovered/Not Resolved]

NARRATIVE: CASE EVENT DATE: 20220601
